FAERS Safety Report 7315593-4 (Version None)
Quarter: 2011Q1

REPORT INFORMATION
  Report Type: 
  Country: None (occurrence: None)
  Receive Date: 20110225
  Receipt Date: 20110215
  Transmission Date: 20110831
  Serious: Yes (Life-Threatening, Hospitalization, Other)
  Sender: FDA-Public Use
  Company Number: GB-BRISTOL-MYERS SQUIBB COMPANY-14812697

PATIENT
  Age: 49 Year
  Sex: Female

DRUGS (7)
  1. PROCHLORPERAZINE [Concomitant]
     Indication: NAUSEA
  2. LOSARTAN POTASSIUM [Suspect]
  3. BENDROFLUMETHIAZIDE [Concomitant]
     Route: 048
  4. METFORMIN HCL [Suspect]
     Indication: TYPE 2 DIABETES MELLITUS
     Route: 048
  5. GENERAL ANESTHESIA [Concomitant]
     Indication: PERIARTHRITIS
  6. ATENOLOL [Concomitant]
     Route: 048
  7. PROCHLORPERAZINE [Concomitant]
     Indication: VOMITING

REACTIONS (2)
  - RENAL FAILURE ACUTE [None]
  - LACTIC ACIDOSIS [None]
